FAERS Safety Report 12273781 (Version 10)
Quarter: 2016Q2

REPORT INFORMATION
  Report Type: Spontaneous
  Country: PL (occurrence: PL)
  Receive Date: 20160415
  Receipt Date: 20160613
  Transmission Date: 20160815
  Serious: Yes (Death, Hospitalization, Other)
  Sender: FDA-Public Use
  Company Number: PL-TAKEDA-2016MPI002308

PATIENT
  Age: 78 Year
  Sex: Female
  Weight: 87 kg

DRUGS (15)
  1. BETALOC                            /00376902/ [Concomitant]
     Active Substance: METOPROLOL TARTRATE
     Indication: CARDIAC FAILURE
     Dosage: 100 MG, QD
     Route: 048
     Dates: start: 20150716, end: 20160322
  2. ZOMETA [Concomitant]
     Active Substance: ZOLEDRONIC ACID
     Dosage: 4 MG, QD
     Route: 042
     Dates: start: 20160325, end: 20160325
  3. CONTROLOC                          /01263201/ [Concomitant]
     Indication: GASTROINTESTINAL DISORDER THERAPY
     Dosage: 20 MG, UNK
     Route: 048
     Dates: start: 20160223, end: 20160226
  4. CONTROLOC                          /01263201/ [Concomitant]
     Dosage: 20 MG, UNK
     Route: 048
     Dates: start: 20160405, end: 20160408
  5. MELPHALAN [Suspect]
     Active Substance: MELPHALAN
     Indication: PLASMA CELL MYELOMA
     Dosage: 14 MG, UNK
     Route: 048
     Dates: start: 20160223, end: 20160405
  6. PRESTARIUM                         /00790701/ [Concomitant]
     Active Substance: PERINDOPRIL
     Indication: HYPERTENSION
     Dosage: 10 MG, QD
     Route: 048
     Dates: start: 20150716, end: 20160322
  7. BETALOC                            /00376902/ [Concomitant]
     Active Substance: METOPROLOL TARTRATE
     Dosage: 50 MG, QD
     Route: 048
     Dates: start: 20160322, end: 20160408
  8. POLOCARD [Concomitant]
     Active Substance: ASPIRIN
     Indication: PULMONARY EMBOLISM
     Dosage: 75 MG, QD
     Route: 048
     Dates: start: 20160223, end: 20160408
  9. VELCADE [Suspect]
     Active Substance: BORTEZOMIB
     Indication: PLASMA CELL MYELOMA
     Dosage: 2.6 MG, 1/WEEK
     Route: 058
     Dates: start: 20160223, end: 20160405
  10. PREDNISONE. [Suspect]
     Active Substance: PREDNISONE
     Indication: PLASMA CELL MYELOMA
     Dosage: 90 MG, UNK
     Route: 048
     Dates: start: 20160223, end: 20160408
  11. HEVIRAN                            /00587301/ [Concomitant]
     Indication: PROPHYLAXIS
     Dosage: 400 MG, BID
     Route: 048
     Dates: start: 20160223, end: 20160408
  12. KLACID                             /00984601/ [Concomitant]
     Active Substance: CLARITHROMYCIN
     Indication: UPPER RESPIRATORY TRACT INFECTION
     Dosage: 0.5 G, BID
     Route: 048
     Dates: start: 20160315, end: 20160318
  13. ZOMETA [Concomitant]
     Active Substance: ZOLEDRONIC ACID
     Indication: OSTEOLYSIS
     Dosage: 4 MG, QD
     Route: 042
     Dates: start: 20160226, end: 20160226
  14. TRAMAL [Concomitant]
     Active Substance: TRAMADOL
     Indication: ARTHRALGIA
     Dosage: 0.15 G, BID
     Route: 048
     Dates: start: 20160325, end: 20160408
  15. FURSEMIDE [Concomitant]
     Indication: CARDIAC FAILURE
     Dosage: 20 MG, QD
     Route: 048
     Dates: start: 20150716, end: 20160322

REACTIONS (9)
  - Sudden death [Fatal]
  - Pharyngitis [Unknown]
  - Decreased appetite [Unknown]
  - Arthralgia [Unknown]
  - Dehydration [Recovered/Resolved]
  - Thrombocytopenia [Unknown]
  - Hypotension [Recovered/Resolved]
  - Dyspnoea exertional [Unknown]
  - Upper respiratory tract infection [Unknown]

NARRATIVE: CASE EVENT DATE: 20160308
